FAERS Safety Report 16702491 (Version 2)
Quarter: 2019Q3

REPORT INFORMATION
  Report Type: Spontaneous
  Country: US (occurrence: US)
  Receive Date: 20190814
  Receipt Date: 20190815
  Transmission Date: 20191004
  Serious: Yes (Disabling)
  Sender: FDA-Public Use
  Company Number: US-009507513-1908USA002729

PATIENT
  Age: 27 Year
  Sex: Female
  Weight: 87.44 kg

DRUGS (1)
  1. NEXPLANON [Suspect]
     Active Substance: ETONOGESTREL
     Indication: CONTRACEPTION
     Dosage: 68 MILLIGRAM, ONCE EVERY FIVE YEARS
     Route: 059
     Dates: start: 20190723, end: 20190731

REACTIONS (7)
  - Hypersensitivity [Unknown]
  - Product use issue [Unknown]
  - Implant site inflammation [Unknown]
  - Implant site cyst [Unknown]
  - Implant site pruritus [Unknown]
  - Skin abrasion [Unknown]
  - Rash generalised [Unknown]

NARRATIVE: CASE EVENT DATE: 201907
